FAERS Safety Report 19945391 (Version 3)
Quarter: 2022Q1

REPORT INFORMATION
  Report Type: Spontaneous
  Country: JP (occurrence: JP)
  Receive Date: 20211012
  Receipt Date: 20220308
  Transmission Date: 20220423
  Serious: Yes (Death, Hospitalization, Other)
  Sender: FDA-Public Use
  Company Number: JP-MSD-M2021-23819

PATIENT
  Age: 77 Year
  Sex: Female
  Weight: 49 kg

DRUGS (11)
  1. KEYTRUDA [Suspect]
     Active Substance: PEMBROLIZUMAB
     Indication: Non-small cell lung cancer stage IV
     Dosage: 200 MILLIGRAM, EVERY 3 WEEKS
     Route: 041
     Dates: start: 20210510, end: 20210929
  2. CARBOPLATIN [Suspect]
     Active Substance: CARBOPLATIN
     Indication: Non-small cell lung cancer stage IV
     Dosage: 760 MILLIGRAM, EVERY 4 WEEKS
     Route: 041
     Dates: start: 20210510, end: 20210602
  3. CARBOPLATIN [Suspect]
     Active Substance: CARBOPLATIN
     Dosage: 330 MILLIGRAM, EVERY 4 WEEKS
     Route: 041
     Dates: start: 20210707, end: 20210804
  4. ABRAXANE [Suspect]
     Active Substance: PACLITAXEL
     Indication: Non-small cell lung cancer stage IV
     Dosage: 150 MILLIGRAM, EVERY WEEK
     Route: 041
     Dates: start: 20210510, end: 20210609
  5. ABRAXANE [Suspect]
     Active Substance: PACLITAXEL
     Dosage: 130 MILLIGRAM, EVERY WEEK
     Route: 041
     Dates: start: 20210707, end: 20210818
  6. DECADRON (DEXAMETHASONE SODIUM PHOSPHATE) [Concomitant]
     Active Substance: DEXAMETHASONE SODIUM PHOSPHATE
     Indication: Antiemetic supportive care
     Dosage: 6.6 MILLIGRAM, DAILY
     Route: 041
     Dates: start: 20210510, end: 20210818
  7. ALOXI [Concomitant]
     Active Substance: PALONOSETRON HYDROCHLORIDE
     Indication: Antiemetic supportive care
     Dosage: 0.75 MILLIGRAM, DAILY
     Route: 041
     Dates: start: 20210510, end: 20210818
  8. APREPITANT [Concomitant]
     Active Substance: APREPITANT
     Indication: Antiemetic supportive care
     Dosage: 125 MILLIGRAM, DAILY
     Route: 048
     Dates: start: 20210510, end: 20210510
  9. APREPITANT [Concomitant]
     Active Substance: APREPITANT
     Dosage: 80 MILLIGRAM, DAILY
     Route: 048
     Dates: start: 20210511, end: 20210512
  10. APREPITANT [Concomitant]
     Active Substance: APREPITANT
     Dosage: 125 MILLIGRAM, DAILY
     Route: 048
     Dates: start: 20210602, end: 20210602
  11. APREPITANT [Concomitant]
     Active Substance: APREPITANT
     Dosage: 80 MILLIGRAM, DAILY
     Route: 048
     Dates: start: 20210603, end: 20210604

REACTIONS (4)
  - Renal impairment [Recovering/Resolving]
  - Anaemia [Recovered/Resolved]
  - Malignant neoplasm progression [Fatal]
  - Pain [Not Recovered/Not Resolved]

NARRATIVE: CASE EVENT DATE: 20210630
